FAERS Safety Report 6223038-0 (Version None)
Quarter: 2009Q2

REPORT INFORMATION
  Report Type: 
  Country: None (occurrence: None)
  Receive Date: 20090611
  Receipt Date: 20090602
  Transmission Date: 20091009
  Serious: Yes (Hospitalization)
  Sender: FDA-Public Use
  Company Number: US-B.I. PHARMACEUTICALS,INC./RIDGEFIELD-2009-DE-04101GD

PATIENT

DRUGS (2)
  1. DIPYRIDAMOLE [Suspect]
     Indication: ANTIPLATELET THERAPY
  2. ASPIRIN [Suspect]
     Indication: ANTIPLATELET THERAPY

REACTIONS (1)
  - CEREBRAL HAEMORRHAGE [None]
